FAERS Safety Report 24641950 (Version 1)
Quarter: 2024Q4

REPORT INFORMATION
  Report Type: Spontaneous
  Country: US (occurrence: US)
  Receive Date: 20241120
  Receipt Date: 20241120
  Transmission Date: 20250115
  Serious: Yes (Hospitalization)
  Sender: MYLAN
  Company Number: US-MYLANLABS-2024M1103500

PATIENT
  Age: 76 Year
  Sex: Male

DRUGS (6)
  1. REMIFENTANIL [Suspect]
     Active Substance: REMIFENTANIL
     Indication: General anaesthesia
     Dosage: 100 MICROGRAM
     Route: 042
  2. SUFENTANIL [Suspect]
     Active Substance: SUFENTANIL
     Indication: General anaesthesia
     Dosage: 100 MICROGRAM, QH
     Route: 042
  3. OXYCODONE [Suspect]
     Active Substance: OXYCODONE
     Indication: Procedural pain
     Dosage: 15 MILLIGRAM, Q4H
     Route: 065
  4. HYDROMORPHONE [Suspect]
     Active Substance: HYDROMORPHONE
     Indication: Procedural pain
     Dosage: UNK
     Route: 042
  5. KETAMINE [Concomitant]
     Active Substance: KETAMINE
     Indication: Procedural pain
     Dosage: 0.1 MILLIGRAM/KILOGRAM, QH
     Route: 042
  6. PROPOFOL [Concomitant]
     Active Substance: PROPOFOL
     Indication: Anaesthesia
     Dosage: UNK
     Route: 065

REACTIONS (1)
  - Hyperaesthesia [Recovering/Resolving]
